FAERS Safety Report 15778183 (Version 3)
Quarter: 2019Q1

REPORT INFORMATION
  Report Type: Spontaneous
  Country: US (occurrence: US)
  Receive Date: 20181231
  Receipt Date: 20190115
  Transmission Date: 20190417
  Serious: Yes (Hospitalization)
  Sender: FDA-Public Use
  Company Number: US-ROCHE-2237335

PATIENT
  Age: 57 Year
  Sex: Male
  Weight: 93.07 kg

DRUGS (1)
  1. ACTEMRA [Suspect]
     Active Substance: TOCILIZUMAB
     Indication: RHEUMATOID ARTHRITIS
     Dosage: EVERY OTHER WEEK, 2 MONTHS 0.9 MG PER ML
     Route: 058
     Dates: start: 20181129, end: 20181213

REACTIONS (13)
  - Upper respiratory tract congestion [Not Recovered/Not Resolved]
  - Vision blurred [Unknown]
  - Chest pain [Recovered/Resolved]
  - Lacrimation increased [Not Recovered/Not Resolved]
  - Breath sounds abnormal [Not Recovered/Not Resolved]
  - Swollen tear duct [Not Recovered/Not Resolved]
  - Oral herpes [Recovered/Resolved]
  - Dizziness [Unknown]
  - Sinus congestion [Not Recovered/Not Resolved]
  - Unevaluable event [Not Recovered/Not Resolved]
  - Eye swelling [Not Recovered/Not Resolved]
  - Gastrooesophageal reflux disease [Not Recovered/Not Resolved]
  - Immunodeficiency [Not Recovered/Not Resolved]

NARRATIVE: CASE EVENT DATE: 201812
